FAERS Safety Report 9744208 (Version 1)
Quarter: 2013Q4

REPORT INFORMATION
  Report Type: Spontaneous
  Country: US (occurrence: US)
  Receive Date: 20131210
  Receipt Date: 20131210
  Transmission Date: 20140711
  Serious: No
  Sender: FDA-Public Use
  Company Number: US-BIOGENIDEC-2013BI100382

PATIENT
  Sex: Male

DRUGS (2)
  1. TECFIDERA [Suspect]
     Indication: MULTIPLE SCLEROSIS
     Route: 048
  2. TECFIDERA [Suspect]
     Indication: MULTIPLE SCLEROSIS
     Route: 048

REACTIONS (7)
  - Hiccups [Unknown]
  - Memory impairment [Unknown]
  - Balance disorder [Unknown]
  - Tinnitus [Unknown]
  - Incontinence [Unknown]
  - Visual impairment [Unknown]
  - Multiple sclerosis relapse [Unknown]
